FAERS Safety Report 6651631-X (Version None)
Quarter: 2010Q1

REPORT INFORMATION
  Report Type: 
  Country: None (occurrence: None)
  Receive Date: 20100325
  Receipt Date: 20100316
  Transmission Date: 20100710
  Serious: Yes (Hospitalization)
  Sender: FDA-Public Use
  Company Number: CH-NAPPMUNDI-DEU-2009-0005770

PATIENT
  Sex: Female

DRUGS (5)
  1. MORPHINE SULFATE [Suspect]
     Indication: PAIN
     Dosage: 40 MG, TID
     Route: 048
  2. RIMSTAR [Interacting]
     Indication: TUBERCULOSIS
     Dosage: UNK
     Route: 048
     Dates: start: 20090601, end: 20091001
  3. SERESTA [Interacting]
     Indication: ANXIETY DISORDER
     Dosage: 15 MG, BID
     Route: 048
  4. RIVOTRIL [Interacting]
     Indication: ANXIETY DISORDER
     Dosage: 3 MG, DAILY
     Route: 048
  5. RIFAMPICIN [Interacting]
     Indication: DRUG USE FOR UNKNOWN INDICATION

REACTIONS (4)
  - DRUG INEFFECTIVE [None]
  - INHIBITORY DRUG INTERACTION [None]
  - INSOMNIA [None]
  - MUSCULOSKELETAL PAIN [None]
